FAERS Safety Report 23460728 (Version 1)
Quarter: 2024Q1

REPORT INFORMATION
  Report Type: Spontaneous
  Country: US (occurrence: None)
  Receive Date: 20240130
  Receipt Date: 20240130
  Transmission Date: 20240409
  Serious: Yes (Disabling)
  Sender: FDA-Public Use
  Company Number: None

PATIENT
  Age: 44 Year
  Sex: Female
  Weight: 101.25 kg

DRUGS (6)
  1. GABAPENTIN [Suspect]
     Active Substance: GABAPENTIN
     Indication: Fibromyalgia
     Dosage: 2 CAPSULES 3 TIMES A DAY ORAL
     Route: 048
  2. OMEPRAZOLE [Concomitant]
     Active Substance: OMEPRAZOLE
  3. DOXYCYCLINE [Concomitant]
     Active Substance: DOXYCYCLINE
  4. ZOFRAN [Concomitant]
     Active Substance: ONDANSETRON HYDROCHLORIDE
  5. Ashwaghanda [Concomitant]
  6. VITAMIN D [Concomitant]
     Active Substance: VITAMIN D NOS

REACTIONS (13)
  - Aggression [None]
  - Agitation [None]
  - Irritability [None]
  - Hallucinations, mixed [None]
  - Emotional poverty [None]
  - Anger [None]
  - Anger [None]
  - Social problem [None]
  - Ketoacidosis [None]
  - Vomiting [None]
  - Pneumothorax [None]
  - Homicidal ideation [None]
  - Suicidal ideation [None]

NARRATIVE: CASE EVENT DATE: 20240130
